FAERS Safety Report 4765129-7 (Version None)
Quarter: 2005Q3

REPORT INFORMATION
  Report Type: 
  Country: None (occurrence: None)
  Receive Date: 20050906
  Receipt Date: 20050819
  Transmission Date: 20060218
  Serious: Yes (Hospitalization, Other)
  Sender: FDA-Public Use
  Company Number: USA0508106048

PATIENT
  Age: 35 Year
  Sex: Female

DRUGS (5)
  1. CYMBALTA [Suspect]
     Indication: NEUROPATHY PERIPHERAL
     Dosage: 30 MG
     Dates: start: 20050810
  2. AMITRIPTYLINE HCL [Concomitant]
  3. NEURONTIN [Concomitant]
  4. LEVOXYL [Concomitant]
  5. ORAL CONTRACEPTIVE NOS [Concomitant]

REACTIONS (4)
  - CARDIOMEGALY [None]
  - HEART RATE INCREASED [None]
  - MALAISE [None]
  - PALPITATIONS [None]
